FAERS Safety Report 14305513 (Version 1)
Quarter: 2017Q4

REPORT INFORMATION
  Report Type: Spontaneous
  Country: FR (occurrence: FR)
  Receive Date: 20171219
  Receipt Date: 20171219
  Transmission Date: 20180321
  Serious: Yes (Other)
  Sender: FDA-Public Use
  Company Number: FR-OTSUKA-DJ20104302

PATIENT

DRUGS (7)
  1. ABILIFY [Suspect]
     Active Substance: ARIPIPRAZOLE
     Indication: PERSONALITY DISORDER
     Route: 048
     Dates: start: 201001, end: 201003
  2. ABILIFY [Suspect]
     Active Substance: ARIPIPRAZOLE
     Indication: PERSONALITY DISORDER
     Route: 048
     Dates: start: 201005
  3. ABILIFY [Suspect]
     Active Substance: ARIPIPRAZOLE
     Indication: AFFECTIVE DISORDER
  4. ANTIDEPRESSANT NOS [Concomitant]
     Active Substance: UNSPECIFIED INGREDIENT
     Route: 065
  5. VALPROMIDE [Concomitant]
     Active Substance: VALPROMIDE
     Indication: ANXIETY
  6. VALPROMIDE [Concomitant]
     Active Substance: VALPROMIDE
     Indication: AFFECTIVE DISORDER
     Route: 065
     Dates: start: 201002
  7. CITALOPRAM [Concomitant]
     Active Substance: CITALOPRAM HYDROBROMIDE
     Route: 065
     Dates: start: 200912, end: 201006

REACTIONS (1)
  - Erectile dysfunction [Recovered/Resolved]

NARRATIVE: CASE EVENT DATE: 2010
